FAERS Safety Report 7720103-3 (Version None)
Quarter: 2011Q3

REPORT INFORMATION
  Report Type: 
  Country: None (occurrence: None)
  Receive Date: 20110824
  Receipt Date: 20110812
  Transmission Date: 20111222
  Serious: Yes (Other)
  Sender: FDA-Public Use
  Company Number: JP-2011-10891

PATIENT
  Age: 90 Year
  Sex: Male

DRUGS (7)
  1. SAMSCA [Suspect]
     Indication: CARDIAC FAILURE CONGESTIVE
     Dosage: 7.5 MG MILLIGRAM(S), QD, ORAL
     Route: 048
     Dates: start: 20110525, end: 20110601
  2. LASIX (FUROSEMIDE) TABLE [Concomitant]
  3. HARNAL D (TAMSULOSIN HYDROCHLORIDE) TABLET [Concomitant]
  4. ITOROL (ISOSORBIDE MONONITRATE) TABLET [Concomitant]
  5. FAMOTIDINE [Concomitant]
  6. LASIX (FUROSEMIDE SODIUM)INJECTION [Concomitant]
  7. MAGMITT (MAGNESIUM OXIDE) TABLET [Concomitant]

REACTIONS (6)
  - HYPERNATRAEMIA [None]
  - FLUID INTAKE REDUCED [None]
  - CHOKING [None]
  - BLOOD UREA INCREASED [None]
  - NASOPHARYNGITIS [None]
  - THIRST [None]
